FAERS Safety Report 6445306-X (Version None)
Quarter: 2009Q4

REPORT INFORMATION
  Report Type: 
  Country: None (occurrence: None)
  Receive Date: 20091118
  Receipt Date: 20091116
  Transmission Date: 20100525
  Serious: Yes (Hospitalization, Other)
  Sender: FDA-Public Use
  Company Number: US-WYE-H12184509

PATIENT
  Sex: Female

DRUGS (2)
  1. PREMARIN [Suspect]
     Indication: HORMONE REPLACEMENT THERAPY
     Dosage: 0.625MG DAILY
     Route: 048
     Dates: start: 20090701
  2. LEVOTHROID [Concomitant]
     Dosage: UNKNOWN
     Route: 065

REACTIONS (3)
  - COUGH [None]
  - PANIC ATTACK [None]
  - THYROID CANCER [None]
